FAERS Safety Report 6419862-1 (Version None)
Quarter: 2009Q4

REPORT INFORMATION
  Report Type: 
  Country: None (occurrence: None)
  Receive Date: 20091013
  Receipt Date: 20090604
  Transmission Date: 20100525
  Serious: Yes (Other)
  Sender: FDA-Public Use
  Company Number: US-JNJFOC-20090602209

PATIENT
  Age: 54 Year
  Sex: Female

DRUGS (2)
  1. MONISTAT 3 COMBINATION PACK [Suspect]
     Indication: FUNGAL INFECTION
     Dosage: 200 MG, 1 IN 1 DAY, VAGINAL
     Route: 067
     Dates: start: 20090501, end: 20090501
  2. MONISTAT 3 COMBINATION PACK [Suspect]
     Indication: FUNGAL INFECTION
     Dosage: 100 MG TUBE 2% STRENGTH EXTERNAL CREAM
     Dates: start: 20090501, end: 20090501

REACTIONS (2)
  - EXPIRED DRUG ADMINISTERED [None]
  - VULVOVAGINAL BURNING SENSATION [None]
